FAERS Safety Report 6604751-X (Version None)
Quarter: 2010Q1

REPORT INFORMATION
  Report Type: 
  Country: None (occurrence: None)
  Receive Date: 20100226
  Receipt Date: 20091210
  Transmission Date: 20100710
  Serious: No
  Sender: FDA-Public Use
  Company Number: US-BRISTOL-MYERS SQUIBB COMPANY-14890859

PATIENT
  Sex: Male
  Weight: 113 kg

DRUGS (13)
  1. ONGLYZA [Suspect]
     Indication: TYPE 2 DIABETES MELLITUS
  2. GLIPIZIDE [Concomitant]
  3. GLUCOPHAGE [Concomitant]
  4. ASPIRIN [Concomitant]
  5. TYLENOL-500 [Concomitant]
  6. MULTI-VITAMIN [Concomitant]
  7. VITAMIN D [Concomitant]
  8. CALTRATE [Concomitant]
  9. PREVACID [Concomitant]
  10. ATACAND [Concomitant]
  11. LIPITOR [Concomitant]
  12. DILANTIN [Concomitant]
  13. PLAVIX [Concomitant]

REACTIONS (1)
  - AGGRESSION [None]
